FAERS Safety Report 17483249 (Version 1)
Quarter: 2020Q1

REPORT INFORMATION
  Report Type: Spontaneous
  Country: US (occurrence: US)
  Receive Date: 20200228
  Receipt Date: 20200228
  Transmission Date: 20200409
  Serious: Yes (Death, Hospitalization)
  Sender: FDA-Public Use
  Company Number: None

PATIENT
  Age: 77 Year
  Sex: Male
  Weight: 58.5 kg

DRUGS (2)
  1. ULORIC [Suspect]
     Active Substance: FEBUXOSTAT
     Indication: GOUT
     Dosage: ?          QUANTITY:1 TABLET(S);?
     Route: 048
  2. C-PAP MACHINE [Concomitant]
     Active Substance: DEVICE

REACTIONS (6)
  - Cardio-respiratory arrest [None]
  - Pain [None]
  - Haemoglobin decreased [None]
  - Unresponsive to stimuli [None]
  - Fatigue [None]
  - Dialysis [None]

NARRATIVE: CASE EVENT DATE: 20190613
